FAERS Safety Report 7006378-7 (Version None)
Quarter: 2010Q3

REPORT INFORMATION
  Report Type: 
  Country: None (occurrence: None)
  Receive Date: 20100909
  Receipt Date: 20100825
  Transmission Date: 20110219
  Serious: Yes (Death)
  Sender: FDA-Public Use
  Company Number: 2010US005178

PATIENT
  Age: 50 Year
  Sex: Male

DRUGS (10)
  1. ALOXI [Suspect]
     Indication: PROPHYLAXIS OF NAUSEA AND VOMITING
     Dosage: 0.25 MG, INTRAVENOUS
     Route: 042
     Dates: start: 20090612, end: 20091210
  2. CARBOPLATIN [Concomitant]
  3. PACLITAXEL [Concomitant]
  4. GEMZAR [Concomitant]
  5. NEUPOGEN [Concomitant]
  6. ALIMTA [Concomitant]
  7. AVASTIN (SIMVASTATIN) [Concomitant]
  8. PROCRIT [Concomitant]
  9. ETHINYL LEUKINE [Concomitant]
  10. OMEGA (CONVALLARIA MAJALIS, CRATAEGUS LAEVIGATA, PROXYPHYLLINE) [Concomitant]

REACTIONS (3)
  - LUNG NEOPLASM MALIGNANT [None]
  - MALIGNANT NEOPLASM PROGRESSION [None]
  - METASTASES TO NECK [None]
